FAERS Safety Report 5032371-X (Version None)
Quarter: 2006Q2

REPORT INFORMATION
  Report Type: 
  Country: None (occurrence: None)
  Receive Date: 20060621
  Receipt Date: 20060621
  Transmission Date: 20061013
  Serious: Yes (Hospitalization)
  Sender: FDA-Public Use
  Company Number: None

PATIENT
  Age: 67 Year
  Sex: Male

DRUGS (1)
  1. MOXIFLOXACIN HCL [Suspect]
     Indication: RENAL CYST
     Dosage: 400 MG PO QD
     Route: 048

REACTIONS (2)
  - CHEST DISCOMFORT [None]
  - FEELING ABNORMAL [None]
